FAERS Safety Report 8429637-X (Version None)
Quarter: 2012Q2

REPORT INFORMATION
  Report Type: 
  Country: None (occurrence: None)
  Receive Date: 20120612
  Receipt Date: 20120606
  Transmission Date: 20120825
  Serious: Yes (Hospitalization)
  Sender: FDA-Public Use
  Company Number: BR-PFIZER INC-2012136293

PATIENT
  Age: 89 Year
  Sex: Male

DRUGS (2)
  1. OLMESARTAN MEDOXOMIL [Suspect]
     Dosage: 40 MG, 1X/DAY
     Route: 048
     Dates: start: 20100501
  2. LYRICA [Suspect]
     Indication: NEUROPATHY PERIPHERAL
     Dosage: UNK
     Dates: start: 20120201

REACTIONS (1)
  - SLUGGISHNESS [None]
